FAERS Safety Report 5142469-3 (Version None)
Quarter: 2006Q4

REPORT INFORMATION
  Report Type: 
  Country: None (occurrence: None)
  Receive Date: 20061102
  Receipt Date: 20050802
  Transmission Date: 20070319
  Serious: Yes (Hospitalization, Other)
  Sender: FDA-Public Use
  Company Number: US-ELI_LILLY_AND_COMPANY-USA0508104442

PATIENT
  Age: 64 Year
  Sex: Female

DRUGS (1)
  1. HUMALOG [Suspect]
     Indication: DIABETES MELLITUS
     Dosage: UNK, UNKNOWN
     Dates: start: 20020101

REACTIONS (12)
  - CORONARY ARTERY BYPASS [None]
  - CYSTITIS [None]
  - FALL [None]
  - FULL BLOOD COUNT ABNORMAL [None]
  - GAIT DISTURBANCE [None]
  - INJECTION SITE PAIN [None]
  - MYOCARDIAL INFARCTION [None]
  - PAIN [None]
  - PHARMACEUTICAL PRODUCT COMPLAINT [None]
  - POSTOPERATIVE WOUND COMPLICATION [None]
  - RASH PRURITIC [None]
  - SWELLING FACE [None]
